FAERS Safety Report 8839964 (Version 1)
Quarter: 2012Q4

REPORT INFORMATION
  Report Type: 
  Country: US (occurrence: US)
  Receive Date: 20121015
  Receipt Date: 20121015
  Transmission Date: 20130627
  Serious: Yes (Hospitalization)
  Sender: FDA-Public Use
  Company Number: US-CELGENEUS-163-21880-12100995

PATIENT
  Sex: Male
  Weight: 78.54 kg

DRUGS (1)
  1. REVLIMID [Suspect]
     Indication: MYELOFIBROSIS
     Dosage: 5 Milligram
     Route: 048
     Dates: start: 201209

REACTIONS (2)
  - Hyperglycaemia [Unknown]
  - Haemoglobin decreased [Unknown]
